FAERS Safety Report 4286417-7 (Version None)
Quarter: 2004Q1

REPORT INFORMATION
  Report Type: 
  Country: None (occurrence: None)
  Receive Date: 20040204
  Receipt Date: 20040127
  Transmission Date: 20041129
  Serious: No
  Sender: FDA-Public Use
  Company Number: 2003UW16543

PATIENT
  Age: 56 Year
  Sex: Female
  Weight: 77.1115 kg

DRUGS (4)
  1. ARIMIDEX [Suspect]
     Indication: BREAST CANCER
     Dosage: 1 MG PO
     Route: 048
     Dates: start: 20031018
  2. LEVOXYL [Concomitant]
  3. COUMADIN [Concomitant]
  4. VITAMINS NOS [Concomitant]

REACTIONS (1)
  - HAIR GROWTH ABNORMAL [None]
